FAERS Safety Report 6107807-3 (Version None)
Quarter: 2009Q1

REPORT INFORMATION
  Report Type: 
  Country: None (occurrence: None)
  Receive Date: 20090309
  Receipt Date: 20090304
  Transmission Date: 20090719
  Serious: Yes (Hospitalization)
  Sender: FDA-Public Use
  Company Number: B0563120A

PATIENT
  Age: 88 Year
  Sex: Male

DRUGS (2)
  1. AUGMENTIN '125' [Suspect]
     Indication: DRUG USE FOR UNKNOWN INDICATION
     Dosage: 1G THREE TIMES PER DAY
     Route: 048
     Dates: start: 20090112, end: 20090122
  2. CIFLOX [Suspect]
     Dosage: 500MG TWICE PER DAY
     Route: 048
     Dates: start: 20090112, end: 20090122

REACTIONS (7)
  - ANAEMIA [None]
  - DEHYDRATION [None]
  - DIARRHOEA [None]
  - GENERAL PHYSICAL HEALTH DETERIORATION [None]
  - HYPOALBUMINAEMIA [None]
  - PSEUDOMEMBRANOUS COLITIS [None]
  - RENAL FAILURE [None]
